FAERS Safety Report 10302030 (Version 2)
Quarter: 2014Q4

REPORT INFORMATION
  Report Type: Spontaneous
  Country: AU (occurrence: AU)
  Receive Date: 20140714
  Receipt Date: 20141111
  Transmission Date: 20150528
  Serious: Yes (Hospitalization, Other)
  Sender: FDA-Public Use
  Company Number: AU-ABBVIE-14P-008-1256818-00

PATIENT
  Age: 38 Year
  Sex: Female

DRUGS (1)
  1. HUMIRA [Suspect]
     Active Substance: ADALIMUMAB
     Indication: CROHN^S DISEASE
     Route: 058
     Dates: start: 201304, end: 20140614

REACTIONS (5)
  - Immunodeficiency [Recovering/Resolving]
  - Fatigue [Recovering/Resolving]
  - Mouth ulceration [Recovering/Resolving]
  - Emotional disorder [Recovering/Resolving]
  - Pharyngeal ulceration [Recovering/Resolving]

NARRATIVE: CASE EVENT DATE: 201406
